FAERS Safety Report 8771788 (Version 2)
Quarter: 2013Q2

REPORT INFORMATION
  Report Type: Spontaneous
  Country: US (occurrence: US)
  Receive Date: 20120831
  Receipt Date: 20130415
  Transmission Date: 20140414
  Serious: Yes (Death, Hospitalization)
  Sender: FDA-Public Use
  Company Number: US-ELI_LILLY_AND_COMPANY-US201208009033

PATIENT
  Age: 79 Year
  Sex: Female

DRUGS (11)
  1. FORTEO [Suspect]
     Indication: OSTEOPOROSIS
     Dosage: 20 UG, QD
     Dates: start: 20120819
  2. FORTEO [Suspect]
     Dosage: 20 UG, QD
  3. FORTEO [Suspect]
     Dosage: 20 UG, QD
  4. ALBUTEROL [Concomitant]
     Dosage: 2.5 MILLIGRAMS/3 MILLILITERS 0.083% DAILY
     Route: 055
  5. WARFARIN [Concomitant]
     Dosage: 2.5 MG, QD
  6. POTASSIUM [Concomitant]
     Dosage: 10 MG, BID
     Route: 048
  7. DILTIAZEM [Concomitant]
     Dosage: 90 MG, BID
  8. HYDROCORTISONE [Concomitant]
     Dosage: APPLY TO AFFECTED AREAS, PRN
     Route: 061
  9. TYLENOL /00020001/ [Concomitant]
     Indication: PAIN
     Dosage: 650 MG, EVERY 8 HRS
  10. REMERON [Concomitant]
     Dosage: 7.5 MG, AT BEDTIME
  11. OMEPRAZOLE [Concomitant]
     Dosage: 20 MG, QD

REACTIONS (6)
  - Death [Fatal]
  - Urinary tract infection [Unknown]
  - Communication disorder [Unknown]
  - Dementia Alzheimer^s type [Not Recovered/Not Resolved]
  - Asthenia [Not Recovered/Not Resolved]
  - Nervous system disorder [Unknown]
